FAERS Safety Report 7773548-X (Version None)
Quarter: 2011Q3

REPORT INFORMATION
  Report Type: 
  Country: None (occurrence: None)
  Receive Date: 20110922
  Receipt Date: 20110920
  Transmission Date: 20111222
  Serious: Yes (Other)
  Sender: FDA-Public Use
  Company Number: US-GENENTECH-321818

PATIENT
  Sex: Female

DRUGS (4)
  1. FLUOXETINE HCL [Concomitant]
     Indication: PRODUCT USED FOR UNKNOWN INDICATION
  2. PREDNISONE [Concomitant]
     Indication: PRODUCT USED FOR UNKNOWN INDICATION
  3. RITUXAN [Suspect]
     Indication: IDIOPATHIC THROMBOCYTOPENIC PURPURA
     Dosage: 570 MG, 1/WEEK
     Route: 042
     Dates: start: 20110602, end: 20110630
  4. WELLBUTRIN [Concomitant]
     Indication: PRODUCT USED FOR UNKNOWN INDICATION

REACTIONS (2)
  - ABORTION MISSED [None]
  - MATERNAL EXPOSURE DURING PREGNANCY [None]
